FAERS Safety Report 11199729 (Version 3)
Quarter: 2015Q4

REPORT INFORMATION
  Report Type: Spontaneous
  Country: US (occurrence: US)
  Receive Date: 20150618
  Receipt Date: 20151022
  Transmission Date: 20160304
  Serious: Yes (Other)
  Sender: FDA-Public Use
  Company Number: US-PFIZER INC-2015200545

PATIENT
  Age: 58 Year
  Sex: Female

DRUGS (1)
  1. AROMASIN [Suspect]
     Active Substance: EXEMESTANE
     Indication: BREAST CANCER
     Dosage: 25 MG, DAILY
     Route: 048
     Dates: start: 201007, end: 201503

REACTIONS (4)
  - Osteonecrosis [Recovered/Resolved]
  - Weight decreased [Not Recovered/Not Resolved]
  - Blood alkaline phosphatase increased [Not Recovered/Not Resolved]
  - Osteopenia [Not Recovered/Not Resolved]
